FAERS Safety Report 11391784 (Version 2)
Quarter: 2015Q3

REPORT INFORMATION
  Report Type: Spontaneous
  Country: US (occurrence: None)
  Receive Date: 20150814
  Receipt Date: 20150827
  Transmission Date: 20151125
  Serious: Yes (Other)
  Sender: FDA-Public Use
  Company Number: 2015SMT00246

PATIENT
  Sex: Male
  Weight: 145.1 kg

DRUGS (10)
  1. REGRANEX [Suspect]
     Active Substance: BECAPLERMIN
     Indication: DIABETIC FOOT
     Route: 061
     Dates: start: 201507, end: 201507
  2. MULTIVITAMIN (DIETARY SUPPLEMENT) [Concomitant]
  3. ATIVAN [Concomitant]
     Active Substance: LORAZEPAM
  4. LOSARTAN (LOSARTAN) [Concomitant]
     Active Substance: LOSARTAN
  5. TEGRETOL (TEGRETOL) [Concomitant]
  6. COREG [Concomitant]
     Active Substance: CARVEDILOL
  7. GLUCOPHAGE (METFORMIN) [Concomitant]
  8. BABY ASPIRIN (ACETYLSALICYLIC ACID) [Concomitant]
     Active Substance: ASPIRIN
  9. EFFEXOR [Concomitant]
     Active Substance: VENLAFAXINE HYDROCHLORIDE
  10. GLYBURIDE. [Concomitant]
     Active Substance: GLYBURIDE

REACTIONS (10)
  - Weight decreased [None]
  - Mobility decreased [None]
  - Urinary incontinence [None]
  - Off label use [None]
  - Localised infection [None]
  - Sepsis [None]
  - Staphylococcus test positive [None]
  - Application site infection [None]
  - Toe amputation [None]
  - Confusional state [None]

NARRATIVE: CASE EVENT DATE: 201507
